FAERS Safety Report 15129700 (Version 5)
Quarter: 2020Q3

REPORT INFORMATION
  Report Type: Spontaneous
  Country: US (occurrence: US)
  Receive Date: 20180711
  Receipt Date: 20200930
  Transmission Date: 20201102
  Serious: Yes (Other)
  Sender: FDA-Public Use
  Company Number: US-SA-2018SA178177

PATIENT

DRUGS (3)
  1. DUPIXENT [Suspect]
     Active Substance: DUPILUMAB
     Indication: PSORIASIS
     Dosage: 600 MG, 1X
     Route: 058
     Dates: start: 2018, end: 2018
  2. DUPIXENT [Suspect]
     Active Substance: DUPILUMAB
     Dosage: 300 MG QOW
     Route: 058
     Dates: start: 202006
  3. DUPIXENT [Suspect]
     Active Substance: DUPILUMAB
     Dosage: 300 MG, QOW
     Route: 058
     Dates: start: 2018

REACTIONS (9)
  - Rash macular [Unknown]
  - Drug ineffective for unapproved indication [Unknown]
  - Pain [Unknown]
  - Haemorrhage [Unknown]
  - Pain in extremity [Unknown]
  - Contusion [Unknown]
  - Skin exfoliation [Unknown]
  - Rash erythematous [Unknown]
  - Product use in unapproved indication [Unknown]

NARRATIVE: CASE EVENT DATE: 2018
